FAERS Safety Report 16410821 (Version 1)
Quarter: 2019Q3

REPORT INFORMATION
  Report Type: Spontaneous
  Country: US (occurrence: US)
  Receive Date: 20190608
  Receipt Date: 20190608
  Transmission Date: 20191004
  Serious: No
  Sender: FDA-Public Use
  Company Number: None

PATIENT
  Age: 13 Year
  Sex: Male
  Weight: 48.15 kg

DRUGS (1)
  1. DYANAVEL XR [Suspect]
     Active Substance: AMPHETAMINE
     Indication: ATTENTION DEFICIT/HYPERACTIVITY DISORDER
     Dosage: ?          QUANTITY:7 ML;?
     Route: 048
     Dates: start: 20180601, end: 20190525

REACTIONS (3)
  - Eye movement disorder [None]
  - Vision blurred [None]
  - Alopecia [None]

NARRATIVE: CASE EVENT DATE: 20190201
